FAERS Safety Report 8043317-4 (Version None)
Quarter: 2012Q1

REPORT INFORMATION
  Report Type: 
  Country: None (occurrence: None)
  Receive Date: 20120112
  Receipt Date: 20120109
  Transmission Date: 20120608
  Serious: Yes (Other)
  Sender: FDA-Public Use
  Company Number: VE-GLAXOSMITHKLINE-A0961009A

PATIENT
  Sex: Female
  Weight: 75 kg

DRUGS (3)
  1. ZOMETA [Concomitant]
  2. PACLITAXEL [Concomitant]
  3. TYKERB [Suspect]
     Indication: BREAST CANCER METASTATIC
     Dosage: 1250MG PER DAY
     Route: 048
     Dates: start: 20100217, end: 20111205

REACTIONS (1)
  - MATERNAL EXPOSURE DURING PREGNANCY [None]
